FAERS Safety Report 8387582-2 (Version None)
Quarter: 2012Q2

REPORT INFORMATION
  Report Type: 
  Country: None (occurrence: None)
  Receive Date: 20120525
  Receipt Date: 20120522
  Transmission Date: 20120825
  Serious: Yes (Other)
  Sender: FDA-Public Use
  Company Number: PHHY2012JP030182

PATIENT
  Age: 51 Year
  Sex: Male

DRUGS (2)
  1. TEGRETOL [Suspect]
     Indication: EPILEPSY
     Dosage: 400 MG, DAILY
     Route: 048
  2. ANTIEPILEPTICS [Concomitant]
     Indication: EPILEPSY
     Route: 048

REACTIONS (1)
  - LOSS OF CONSCIOUSNESS [None]
